FAERS Safety Report 12987417 (Version 3)
Quarter: 2016Q4

REPORT INFORMATION
  Report Type: Spontaneous
  Country: US (occurrence: US)
  Receive Date: 20161130
  Receipt Date: 20161208
  Transmission Date: 20170207
  Serious: Yes (Hospitalization)
  Sender: FDA-Public Use
  Company Number: US-BIOMARINAP-US-2016-111968

PATIENT
  Age: 0 Day
  Sex: Male

DRUGS (1)
  1. KUVAN [Suspect]
     Active Substance: SAPROPTERIN DIHYDROCHLORIDE
     Indication: PHENYLKETONURIA
     Route: 015

REACTIONS (3)
  - Oesophageal atresia [Not Recovered/Not Resolved]
  - Neonatal respiratory distress syndrome [Not Recovered/Not Resolved]
  - Foetal growth restriction [Not Recovered/Not Resolved]

NARRATIVE: CASE EVENT DATE: 20161031
